FAERS Safety Report 5321806-0 (Version None)
Quarter: 2007Q2

REPORT INFORMATION
  Report Type: 
  Country: None (occurrence: None)
  Receive Date: 20070510
  Receipt Date: 20070501
  Transmission Date: 20071010
  Serious: Yes (Other)
  Sender: FDA-Public Use
  Company Number: US-PFIZER INC-2007036177

PATIENT
  Sex: Female
  Weight: 52.727 kg

DRUGS (6)
  1. CHANTIX [Suspect]
     Indication: SMOKING CESSATION THERAPY
  2. PROMETHAZINE [Suspect]
     Indication: NAUSEA
  3. SERTRALINE [Concomitant]
  4. PREVACID [Concomitant]
  5. PLAVIX [Concomitant]
  6. LEVOTHROID [Concomitant]

REACTIONS (3)
  - DISABILITY [None]
  - NAUSEA [None]
  - SOMNOLENCE [None]
